FAERS Safety Report 4512263-2 (Version None)
Quarter: 2004Q4

REPORT INFORMATION
  Report Type: 
  Country: None (occurrence: None)
  Receive Date: 20041129
  Receipt Date: 20020227
  Transmission Date: 20050328
  Serious: Yes (Hospitalization)
  Sender: FDA-Public Use
  Company Number: US-GLAXOSMITHKLINE-A0362007A

PATIENT
  Age: 32 Year
  Sex: Female

DRUGS (5)
  1. LOTRONEX [Suspect]
     Indication: CROHN'S DISEASE
     Dosage: 1MG TWICE PER DAY
     Route: 048
     Dates: start: 20000813, end: 20001001
  2. TPN [Concomitant]
     Indication: CROHN'S DISEASE
     Route: 042
  3. PREDNISONE [Concomitant]
     Dates: end: 20000815
  4. SOLU-CORTEF [Concomitant]
     Route: 042
     Dates: start: 20000815
  5. MORPHINE SULFATE [Concomitant]
     Route: 042
     Dates: start: 20000813

REACTIONS (1)
  - CROHN'S DISEASE [None]
